FAERS Safety Report 22194157 (Version 1)
Quarter: 2023Q2

REPORT INFORMATION
  Report Type: Spontaneous
  Country: ES (occurrence: ES)
  Receive Date: 20230411
  Receipt Date: 20230411
  Transmission Date: 20230722
  Serious: Yes (Other)
  Sender: FDA-Public Use
  Company Number: ES-LEO Pharma-350670

PATIENT
  Age: 71 Year
  Sex: Male

DRUGS (11)
  1. OLMESARTAN [Suspect]
     Active Substance: OLMESARTAN
     Indication: Hypertension
     Dosage: UNK (1 TABLET DAILY, OLMESARTAN 20 MG/AMLODIPINE 5 MG TABLETS)
     Route: 065
  2. INNOHEP [Suspect]
     Active Substance: TINZAPARIN SODIUM
     Indication: Pulmonary embolism
     Dosage: 14000 INTERNATIONAL UNIT
     Route: 065
     Dates: start: 20220926, end: 20221002
  3. INNOHEP [Suspect]
     Active Substance: TINZAPARIN SODIUM
     Dosage: 10000 INTERNATIONAL UNIT
     Route: 065
     Dates: start: 20221004
  4. INNOHEP [Suspect]
     Active Substance: TINZAPARIN SODIUM
     Dosage: 14000 INTERNATIONAL UNIT
     Route: 065
     Dates: start: 202211
  5. ASPIRIN [Concomitant]
     Active Substance: ASPIRIN
     Indication: Myocardial ischaemia
     Dosage: 100 MILLIGRAM, ONCE A DAY
     Route: 065
  6. FILGRASTIM [Concomitant]
     Active Substance: FILGRASTIM
     Indication: Neutropenia
     Dosage: UNK (5 ?G/KG/DAY FOR 72 HOURS AFTER CHEMOTHERAPY)
     Route: 065
     Dates: start: 20220926
  7. FLUOROURACIL\LEUCOVORIN CALCIUM\OXALIPLATIN [Concomitant]
     Active Substance: FLUOROURACIL\LEUCOVORIN CALCIUM\OXALIPLATIN
     Indication: Squamous cell carcinoma
     Dosage: UNK (OXALIPLATIN 85MG/M2 + FOLINIC ACID 400MG/M2 EVERY 14 DAYS)
     Route: 065
     Dates: start: 202207
  8. LANSOPRAZOLE [Concomitant]
     Active Substance: LANSOPRAZOLE
     Indication: Product used for unknown indication
     Dosage: 15 MILLIGRAM, ONCE A DAY
     Route: 065
  9. METHYLPREDNISOLONE [Concomitant]
     Active Substance: METHYLPREDNISOLONE
     Indication: Neutropenia
     Dosage: UNK
     Route: 048
     Dates: start: 20220926
  10. METOCLOPRAMIDE [Concomitant]
     Active Substance: METOCLOPRAMIDE
     Indication: Neutropenia
     Dosage: UNK
     Route: 065
     Dates: start: 20220926
  11. PITAVASTATIN [Concomitant]
     Active Substance: PITAVASTATIN
     Indication: Dyslipidaemia
     Dosage: 1 MILLIGRAM, ONCE A DAY
     Route: 065

REACTIONS (3)
  - Anaemia [Recovered/Resolved]
  - Haematemesis [Recovered/Resolved]
  - Rectal haemorrhage [Recovered/Resolved]

NARRATIVE: CASE EVENT DATE: 20221002
